FAERS Safety Report 13702629 (Version 3)
Quarter: 2018Q2

REPORT INFORMATION
  Report Type: Spontaneous
  Country: CH (occurrence: CH)
  Receive Date: 20170629
  Receipt Date: 20180507
  Transmission Date: 20180711
  Serious: Yes (Hospitalization, Other)
  Sender: FDA-Public Use
  Company Number: CH-GILEAD-2017-0280507

PATIENT
  Age: 56 Year
  Sex: Male

DRUGS (19)
  1. CALCIMAGON D3 [Concomitant]
     Active Substance: CALCIUM\CHOLECALCIFEROL
     Route: 048
  2. ASPIRIN CARDIO [Concomitant]
     Active Substance: ASPIRIN
     Dosage: 100 MG, QD
     Route: 048
  3. GABAPENTIN MEPHA [Concomitant]
     Route: 048
  4. COVERSUM [Concomitant]
     Active Substance: PERINDOPRIL
     Dosage: 2.5 MG, QD
     Route: 048
  5. CYMBALTA [Concomitant]
     Active Substance: DULOXETINE HYDROCHLORIDE
     Route: 048
  6. SIRDALUD [Concomitant]
     Active Substance: TIZANIDINE
     Route: 048
  7. STRIBILD [Suspect]
     Active Substance: COBICISTAT\ELVITEGRAVIR\EMTRICITABINE\TENOFOVIR DISOPROXIL FUMARATE
     Indication: PRODUCT USED FOR UNKNOWN INDICATION
     Dosage: 1 DF, QD
     Route: 048
     Dates: start: 201605
  8. GABAPENTIN MEPHA [Concomitant]
     Dosage: 300 MG, BID
     Route: 048
  9. SELIPRAN [Concomitant]
     Active Substance: PRAVASTATIN SODIUM
     Route: 048
  10. ASPIRIN CARDIO [Concomitant]
     Active Substance: ASPIRIN
     Route: 048
  11. SIRDALUD [Concomitant]
     Active Substance: TIZANIDINE
     Dosage: 4 MG, QD
     Route: 048
  12. SELIPRAN [Concomitant]
     Active Substance: PRAVASTATIN SODIUM
     Dosage: 40 MG, QD
     Route: 048
  13. CYMBALTA [Concomitant]
     Active Substance: DULOXETINE HYDROCHLORIDE
     Dosage: 30 MG, QD
     Route: 048
  14. KALETRA [Suspect]
     Active Substance: LOPINAVIR\RITONAVIR
     Indication: PRODUCT USED FOR UNKNOWN INDICATION
     Dosage: 1 DF, QD
     Route: 048
     Dates: end: 201605
  15. CALCIMAGON D3 [Concomitant]
     Active Substance: CALCIUM\CHOLECALCIFEROL
     Dosage: 1 DF, QD
     Route: 048
  16. COVERSUM [Concomitant]
     Active Substance: PERINDOPRIL
     Route: 048
  17. PLAQUENIL                          /00072602/ [Concomitant]
     Active Substance: HYDROXYCHLOROQUINE DIPHOSPHATE
     Dosage: 200 MG, BID
     Route: 048
  18. VIRAMUNE [Concomitant]
     Active Substance: NEVIRAPINE
     Dosage: 1 DF, QD
     Route: 048
     Dates: end: 201605
  19. VIREAD [Suspect]
     Active Substance: TENOFOVIR DISOPROXIL FUMARATE
     Indication: PRODUCT USED FOR UNKNOWN INDICATION
     Dosage: 245 MG, QD
     Route: 048
     Dates: start: 2003, end: 201605

REACTIONS (1)
  - Osteonecrosis [Recovered/Resolved with Sequelae]

NARRATIVE: CASE EVENT DATE: 201704
